FAERS Safety Report 6288792-0 (Version None)
Quarter: 2009Q3

REPORT INFORMATION
  Report Type: 
  Country: None (occurrence: None)
  Receive Date: 20090729
  Receipt Date: 20090729
  Transmission Date: 20100115
  Serious: Yes (Hospitalization, Other)
  Sender: FDA-Public Use
  Company Number: US-ABBOTT-09P-163-0584745-00

PATIENT
  Sex: Female
  Weight: 52.21 kg

DRUGS (6)
  1. HUMIRA [Suspect]
     Indication: CROHN'S DISEASE
     Route: 058
     Dates: start: 20090501, end: 20090522
  2. BIAXIN [Suspect]
     Indication: DRUG USE FOR UNKNOWN INDICATION
  3. PREDNISONE [Concomitant]
     Indication: CROHN'S DISEASE
  4. LOPRESSOR [Concomitant]
     Indication: HYPERTENSION
  5. PREMARIN [Concomitant]
     Indication: MENOPAUSE
  6. IMODIUM [Concomitant]
     Indication: DIARRHOEA

REACTIONS (7)
  - ALLERGY TO ARTHROPOD BITE [None]
  - ARTHROPOD BITE [None]
  - BLOOD POTASSIUM DECREASED [None]
  - HEPATIC ENZYME INCREASED [None]
  - HYPERSENSITIVITY [None]
  - INFECTION [None]
  - LOCAL SWELLING [None]
